FAERS Safety Report 4535612-8 (Version None)
Quarter: 2004Q4

REPORT INFORMATION
  Report Type: 
  Country: None (occurrence: None)
  Receive Date: 20041214
  Receipt Date: 20040927
  Transmission Date: 20050328
  Serious: No
  Sender: FDA-Public Use
  Company Number: US_0409106218

PATIENT
  Age: 75 Year
  Sex: Female
  Weight: 86 kg

DRUGS (6)
  1. CIALIS [Suspect]
     Indication: ERECTILE DYSFUNCTION
     Dosage: 20 MG AS NEEDED
     Dates: start: 20040901
  2. GLUCOPHAGE /SCH/ (METFORMIN HYDROCHLORIDE) [Concomitant]
  3. ZINC [Concomitant]
  4. ASPIRIN [Concomitant]
  5. VITAMIN CAP [Concomitant]
  6. VITAMINS E [Concomitant]

REACTIONS (1)
  - DRUG INEFFECTIVE [None]
